FAERS Safety Report 15386562 (Version 2)
Quarter: 2018Q4

REPORT INFORMATION
  Report Type: Spontaneous
  Country: JP (occurrence: JP)
  Receive Date: 20180914
  Receipt Date: 20181004
  Transmission Date: 20190204
  Serious: Yes (Hospitalization)
  Sender: FDA-Public Use
  Company Number: PHJP2018JP016375

PATIENT
  Age: 55 Year
  Sex: Male

DRUGS (3)
  1. COSENTYX [Suspect]
     Active Substance: SECUKINUMAB
     Indication: PSORIASIS
     Dosage: UNK, QW
     Route: 058
     Dates: start: 20160705
  2. COSENTYX [Suspect]
     Active Substance: SECUKINUMAB
     Dosage: UNK, 4W
     Route: 058
     Dates: start: 20180123
  3. COSENTYX [Suspect]
     Active Substance: SECUKINUMAB
     Dosage: UNK, 4W
     Route: 058
     Dates: end: 20170405

REACTIONS (3)
  - Priapism [Recovered/Resolved]
  - Back pain [Unknown]
  - Aortic dissection [Recovered/Resolved]

NARRATIVE: CASE EVENT DATE: 20170704
